FAERS Safety Report 5799617-1 (Version None)
Quarter: 2008Q3

REPORT INFORMATION
  Report Type: 
  Country: None (occurrence: None)
  Receive Date: 20080701
  Receipt Date: 20080701
  Transmission Date: 20090109
  Serious: Yes (Other)
  Sender: FDA-Public Use
  Company Number: None

PATIENT
  Age: 66 Year
  Sex: Female
  Weight: 74.3899 kg

DRUGS (2)
  1. CRESTOR [Suspect]
     Dosage: 10 MG ONCE A DAY; 20 MG ONCE A DAY
     Dates: start: 20070701, end: 20080401
  2. CRESTOR [Suspect]
     Dosage: 10 MG ONCE A DAY; 20 MG ONCE A DAY
     Dates: start: 20080501

REACTIONS (5)
  - BACK PAIN [None]
  - GROIN PAIN [None]
  - INADEQUATE ANALGESIA [None]
  - NO THERAPEUTIC RESPONSE [None]
  - PAIN IN EXTREMITY [None]
